FAERS Safety Report 23613194 (Version 1)
Quarter: 2024Q1

REPORT INFORMATION
  Report Type: Spontaneous
  Country: DE (occurrence: DE)
  Receive Date: 20240308
  Receipt Date: 20240308
  Transmission Date: 20240409
  Serious: Yes (Other)
  Sender: FDA-Public Use
  Company Number: DE-HORIZON THERAPEUTICS-HZN-2024-002690

PATIENT

DRUGS (2)
  1. SODIUM PHENYLBUTYRATE [Suspect]
     Active Substance: SODIUM PHENYLBUTYRATE
     Indication: Argininosuccinate synthetase deficiency
     Route: 065
  2. SODIUM BENZOATE [Concomitant]
     Active Substance: SODIUM BENZOATE
     Indication: Product used for unknown indication
     Route: 065

REACTIONS (2)
  - Hyperammonaemic crisis [Unknown]
  - Diarrhoea [Unknown]
